FAERS Safety Report 4274129-5 (Version None)
Quarter: 2004Q1

REPORT INFORMATION
  Report Type: 
  Country: None (occurrence: None)
  Receive Date: 20040120
  Receipt Date: 20020312
  Transmission Date: 20041129
  Serious: Yes (Hospitalization, Other)
  Sender: FDA-Public Use
  Company Number: US-BRISTOL-MYERS SQUIBB COMPANY-11766946

PATIENT
  Age: 54 Year
  Sex: Male

DRUGS (12)
  1. ATORVASTATIN [Suspect]
     Dosage: MOST RECENT DOSE PRIOR TO EVENT WAS ON 26-JAN-2002.
     Route: 048
     Dates: start: 20010402
  2. GATIFLOXACIN [Suspect]
     Dosage: MOST RECENT DOSE PRIOR TO EVENT WAS ON 26-JAN-2002.
     Route: 048
     Dates: start: 20010418
  3. ASPIRIN [Concomitant]
     Route: 048
     Dates: start: 20010325
  4. PEPCID [Concomitant]
     Route: 048
     Dates: start: 20010327
  5. FLONASE [Concomitant]
     Dosage: NASAL SPRAY
     Route: 050
     Dates: start: 20010305
  6. LOPRESSOR [Concomitant]
     Route: 048
     Dates: start: 20010325
  7. GLUCOPHAGE [Concomitant]
     Route: 048
     Dates: start: 19980101
  8. GLUCOTROL XL [Concomitant]
     Route: 048
     Dates: start: 20010305
  9. PLAVIX [Concomitant]
     Route: 048
     Dates: start: 20010327
  10. ACCUPRIL [Concomitant]
     Route: 048
     Dates: start: 20010327
  11. CLARITIN [Concomitant]
     Route: 048
     Dates: start: 20010305
  12. ACTOS [Concomitant]
     Route: 048
     Dates: end: 20020101

REACTIONS (5)
  - BLOOD MAGNESIUM ABNORMAL [None]
  - BLOOD POTASSIUM DECREASED [None]
  - CONVULSION [None]
  - HYPOGLYCAEMIA [None]
  - METABOLIC DISORDER [None]
